FAERS Safety Report 4358548-4 (Version None)
Quarter: 2004Q2

REPORT INFORMATION
  Report Type: 
  Country: None (occurrence: None)
  Receive Date: 20040512
  Receipt Date: 20040428
  Transmission Date: 20050107
  Serious: Yes (Death, Life-Threatening)
  Sender: FDA-Public Use
  Company Number: 2004AP02537

PATIENT
  Age: 38 Year
  Sex: Female

DRUGS (2)
  1. MARCAIN HEAVY [Suspect]
     Indication: SPINAL ANAESTHESIA
     Dosage: 2.2 ML ONCE IT
     Dates: start: 20040227, end: 20040227
  2. CEFAZOLIN [Concomitant]

REACTIONS (8)
  - CAESAREAN SECTION [None]
  - CARDIAC ARREST [None]
  - COMPLICATIONS OF MATERNAL EXPOSURE TO THERAPEUTIC DRUGS [None]
  - GAZE PALSY [None]
  - HYPOTENSION [None]
  - MUSCULOSKELETAL STIFFNESS [None]
  - PULSE ABSENT [None]
  - VENTRICULAR FIBRILLATION [None]
